FAERS Safety Report 13254828 (Version 1)
Quarter: 2017Q1

REPORT INFORMATION
  Report Type: Spontaneous
  Country: US (occurrence: US)
  Receive Date: 20170217
  Receipt Date: 20170217
  Transmission Date: 20170428
  Serious: Yes (Other)
  Sender: FDA-Public Use
  Company Number: None

PATIENT
  Age: 52 Year
  Sex: Female
  Weight: 62.1 kg

DRUGS (1)
  1. DULOXETINE. [Suspect]
     Active Substance: DULOXETINE
     Indication: DRUG THERAPY
     Dosage: ?          OTHER STRENGTH:60MG;QUANTITY:1 CAPSULE(S);?
     Route: 048
     Dates: start: 20170101, end: 20170217

REACTIONS (5)
  - Abnormal dreams [None]
  - Insomnia [None]
  - Hallucination [None]
  - Night sweats [None]
  - Product substitution issue [None]
